FAERS Safety Report 8509632-2 (Version None)
Quarter: 2012Q3

REPORT INFORMATION
  Report Type: 
  Country: None (occurrence: None)
  Receive Date: 20120713
  Receipt Date: 20120709
  Transmission Date: 20120928
  Serious: Yes (Hospitalization)
  Sender: FDA-Public Use
  Company Number: PHHY2012JP060097

PATIENT
  Age: 88 Year
  Sex: Male

DRUGS (1)
  1. VALSARTAN [Suspect]

REACTIONS (2)
  - SECONDARY ADRENOCORTICAL INSUFFICIENCY [None]
  - HYPONATRAEMIA [None]
